FAERS Safety Report 7959308-5 (Version None)
Quarter: 2011Q4

REPORT INFORMATION
  Report Type: 
  Country: None (occurrence: None)
  Receive Date: 20111206
  Receipt Date: 20111205
  Transmission Date: 20120403
  Serious: Yes (Other)
  Sender: FDA-Public Use
  Company Number: BR-PFIZER INC-2011296345

PATIENT
  Age: 53 Year
  Sex: Female
  Weight: 66.8 kg

DRUGS (5)
  1. ESTRADIOL VALERATE/LEVONORGESTREL [Concomitant]
     Indication: MENSTRUAL DISORDER
     Dosage: 1 DF, UNK
     Route: 048
     Dates: start: 20100101
  2. LOTAR [Concomitant]
     Indication: HYPERTENSION
     Dosage: 1 DF, UNK
     Route: 048
     Dates: start: 20060101
  3. PANTOPRAZOLE [Suspect]
     Indication: DYSPEPSIA
     Dosage: 40 MG, 1X/DAY
     Route: 048
     Dates: start: 20111001
  4. PANTOPRAZOLE [Suspect]
     Indication: HERNIA
  5. HYGROTON [Concomitant]
     Indication: HYPERTENSION
     Dosage: 1 DF, UNK
     Route: 048
     Dates: start: 20060101

REACTIONS (3)
  - FAECAL VOLUME INCREASED [None]
  - ABDOMINAL DISTENSION [None]
  - HAEMATOCHEZIA [None]
